FAERS Safety Report 24148218 (Version 2)
Quarter: 2024Q3

REPORT INFORMATION
  Report Type: Spontaneous
  Country: CH (occurrence: CH)
  Receive Date: 20240729
  Receipt Date: 20240731
  Transmission Date: 20241017
  Serious: Yes (Death)
  Sender: ELI LILLY AND CO
  Company Number: CH-ELI_LILLY_AND_COMPANY-CH202407015776

PATIENT
  Age: 66 Year
  Sex: Male

DRUGS (2)
  1. CYRAMZA [Suspect]
     Active Substance: RAMUCIRUMAB
     Indication: Product used for unknown indication
     Dosage: 800 MG, UNKNOWN
     Route: 065
     Dates: start: 20210531
  2. CYRAMZA [Suspect]
     Active Substance: RAMUCIRUMAB
     Dosage: 800 MG, UNKNOWN
     Route: 065
     Dates: start: 20210621

REACTIONS (1)
  - Malignant neoplasm progression [Fatal]

NARRATIVE: CASE EVENT DATE: 20230326
